FAERS Safety Report 9527014 (Version 2)
Quarter: 2013Q4

REPORT INFORMATION
  Report Type: Report from Study
  Country: US (occurrence: US)
  Receive Date: 20130916
  Receipt Date: 20131003
  Transmission Date: 20140711
  Serious: Yes (Hospitalization, Other)
  Sender: FDA-Public Use
  Company Number: US-BAXTER-2013BAX035786

PATIENT
  Age: 50 Year
  Sex: Female
  Weight: 123 kg

DRUGS (5)
  1. ARALAST NP [Suspect]
     Indication: ALPHA-1 ANTI-TRYPSIN DEFICIENCY
     Dosage: 8 VIALS
     Route: 042
     Dates: start: 200703
  2. NADOLOL [Concomitant]
     Indication: LIVER DISORDER
     Route: 048
     Dates: start: 2003
  3. PREVACID [Concomitant]
     Indication: LIVER DISORDER
     Dosage: 20
     Route: 048
     Dates: start: 2003
  4. SPIRONOLACTONE [Concomitant]
     Indication: LIVER DISORDER
     Route: 048
     Dates: start: 2003
  5. MILK THISTLE [Concomitant]
     Indication: LIVER DISORDER
     Route: 048
     Dates: start: 2003

REACTIONS (2)
  - Pneumonia [Recovered/Resolved]
  - Drug dose omission [Unknown]
